FAERS Safety Report 4735586-0 (Version None)
Quarter: 2005Q3

REPORT INFORMATION
  Report Type: 
  Country: None (occurrence: None)
  Receive Date: 20050805
  Receipt Date: 20050419
  Transmission Date: 20060218
  Serious: Yes (Hospitalization)
  Sender: FDA-Public Use
  Company Number: US-MERCK-0504USA03753

PATIENT
  Age: 65 Year
  Sex: Male
  Weight: 102 kg

DRUGS (6)
  1. FUROSEMIDE [Concomitant]
     Route: 065
  2. LIPITOR [Concomitant]
     Route: 065
  3. LISINOPRIL [Concomitant]
     Route: 065
  4. TAZTIA XT [Concomitant]
     Route: 065
  5. VIOXX [Suspect]
     Indication: OSTEOARTHRITIS
     Route: 048
     Dates: start: 20021030, end: 20040101
  6. ADVAIR DISKUS 100/50 [Concomitant]
     Route: 065

REACTIONS (15)
  - ANGINA PECTORIS [None]
  - BACTERIAL INFECTION [None]
  - BONE INFECTION [None]
  - CAROTID ARTERY STENOSIS [None]
  - CEREBROVASCULAR ACCIDENT [None]
  - CHEST PAIN [None]
  - CORONARY ARTERY DISEASE [None]
  - DRUG HYPERSENSITIVITY [None]
  - GASTROINTESTINAL DISORDER [None]
  - HERNIA [None]
  - HYPERSENSITIVITY [None]
  - MYOCARDIAL INFARCTION [None]
  - OSTEONECROSIS [None]
  - SYNCOPE [None]
  - WOUND INFECTION [None]
